FAERS Safety Report 10621301 (Version 2)
Quarter: 2015Q1

REPORT INFORMATION
  Report Type: Spontaneous
  Country: BR (occurrence: BR)
  Receive Date: 20141203
  Receipt Date: 20150130
  Transmission Date: 20150720
  Serious: Yes (Death, Hospitalization, Other)
  Sender: FDA-Public Use
  Company Number: BR-PFIZER INC-2014328057

PATIENT
  Age: 85 Year
  Sex: Female

DRUGS (6)
  1. NEBILET [Concomitant]
     Active Substance: NEBIVOLOL
     Dosage: 1 DF, 1X/DAY
     Dates: start: 2006
  2. OMEPRAZOLE. [Concomitant]
     Active Substance: OMEPRAZOLE
     Indication: FUNCTIONAL GASTROINTESTINAL DISORDER
     Dosage: UNK
     Dates: start: 201303
  3. DICLOFENAC [Concomitant]
     Active Substance: DICLOFENAC
     Indication: PAIN IN EXTREMITY
     Dosage: UNK
     Dates: start: 2012
  4. PURAN [Concomitant]
     Active Substance: LEVOTHYROXINE SODIUM
     Indication: THYROID DISORDER
     Dosage: 1 DF, 1X/DAY
     Dates: start: 1994
  5. NOVALGIN [Concomitant]
     Active Substance: METAMIZOLE SODIUM
     Indication: PAIN
     Dosage: 40 GTT, AS NEEDED
     Dates: start: 2012
  6. AROMASIN [Suspect]
     Active Substance: EXEMESTANE
     Indication: BREAST CANCER METASTATIC
     Dosage: 25 MG, UNK
     Route: 048
     Dates: start: 2009

REACTIONS (2)
  - Death [Fatal]
  - Oesophageal perforation [Unknown]
